FAERS Safety Report 18355033 (Version 4)
Quarter: 2021Q4

REPORT INFORMATION
  Report Type: Spontaneous
  Country: US (occurrence: US)
  Receive Date: 20201007
  Receipt Date: 20211224
  Transmission Date: 20220303
  Serious: Yes (Hospitalization)
  Sender: FDA-Public Use
  Company Number: US-SA-2020SA156118

PATIENT
  Age: 10 Year
  Sex: Male
  Weight: 40 kg

DRUGS (2)
  1. LUMIZYME [Suspect]
     Active Substance: ALGLUCOSIDASE ALFA
     Indication: Glycogen storage disease type II
     Dosage: 800 MG, QOW
     Route: 041
     Dates: start: 20181210
  2. LUMIZYME [Suspect]
     Active Substance: ALGLUCOSIDASE ALFA
     Dosage: 950 MG, QOW
     Route: 041
     Dates: start: 202110

REACTIONS (6)
  - Post procedural complication [Unknown]
  - Nervous system disorder [Unknown]
  - Elective surgery [Unknown]
  - Weight increased [Unknown]
  - Weight decreased [Unknown]
  - Product dose omission issue [Unknown]

NARRATIVE: CASE EVENT DATE: 20200101
